FAERS Safety Report 5860333-9 (Version None)
Quarter: 2008Q3

REPORT INFORMATION
  Report Type: 
  Country: None (occurrence: None)
  Receive Date: 20080827
  Receipt Date: 20070801
  Transmission Date: 20090109
  Serious: No
  Sender: FDA-Public Use
  Company Number: US-ABBOTT-07P-163-0376398-00

PATIENT
  Sex: Male
  Weight: 95 kg

DRUGS (8)
  1. COATED PDS [Suspect]
     Indication: BLOOD CHOLESTEROL INCREASED
     Route: 048
     Dates: start: 20070724, end: 20070725
  2. WARFARIN SODIUM [Concomitant]
     Indication: PULMONARY EMBOLISM
     Route: 048
     Dates: start: 19910101
  3. GEMFIBROZIL [Concomitant]
     Indication: BLOOD CHOLESTEROL INCREASED
     Route: 048
  4. ALLOPURINOL [Concomitant]
     Indication: GOUT
     Route: 048
  5. HYDROCODONE BITARTRATE [Concomitant]
     Indication: ARTHRALGIA
     Route: 048
  6. FUROSEMIDE [Concomitant]
     Indication: DIURETIC THERAPY
     Route: 048
  7. GABAPENTIN [Concomitant]
     Indication: DRUG USE FOR UNKNOWN INDICATION
     Route: 048
  8. VITAMIN B12 INJECTION [Concomitant]
     Indication: PERNICIOUS ANAEMIA
     Route: 030
     Dates: start: 19910101

REACTIONS (4)
  - PRURITUS GENERALISED [None]
  - SENSORY DISTURBANCE [None]
  - SKIN BURNING SENSATION [None]
  - URTICARIA [None]
